FAERS Safety Report 12611432 (Version 1)
Quarter: 2016Q3

REPORT INFORMATION
  Report Type: Report from Study
  Country: AU (occurrence: AU)
  Receive Date: 20160801
  Receipt Date: 20160801
  Transmission Date: 20161109
  Serious: Yes (Death, Life-Threatening, Hospitalization)
  Sender: FDA-Public Use
  Company Number: AU-PFIZER INC-2016361117

PATIENT
  Age: 63 Year
  Sex: Female

DRUGS (16)
  1. IRINOTECAN HCL [Suspect]
     Active Substance: IRINOTECAN HYDROCHLORIDE
     Indication: COLORECTAL CANCER
     Dosage: DAY 1 OF 14-DAY CYCLES (180 MG/M2,1 IN 14 D)
     Route: 042
     Dates: start: 20150916, end: 20151111
  2. FLUOROURACIL. [Suspect]
     Active Substance: FLUOROURACIL
     Dosage: DAY 1 OF 14-DAY CYCLES, OVER 46 HOURS (1920 MG/M2,1 IN 14 D)
     Route: 042
     Dates: start: 20151204, end: 20160331
  3. ATORVASTATIN /01326102/ [Concomitant]
     Active Substance: ATORVASTATIN
     Indication: HYPERCHOLESTEROLAEMIA
     Dosage: 80 MG, 1 IN 1 D
     Route: 048
     Dates: start: 201510
  4. ATORVASTATIN /01326102/ [Concomitant]
     Active Substance: ATORVASTATIN
     Dosage: 40 MG, 1 IN 1 D
     Route: 048
     Dates: start: 2001, end: 201510
  5. DAPAGLIFLOZIN [Concomitant]
     Active Substance: DAPAGLIFLOZIN
     Indication: DIABETES MELLITUS
     Dosage: 10 MCG, 1 IN 1 D
     Route: 048
     Dates: start: 201507
  6. FOLINIC ACID /00566702/ [Concomitant]
     Active Substance: LEUCOVORIN CALCIUM
     Indication: COLORECTAL CANCER
     Dosage: DAY 1 OF 14-DAY CYCLES (400 MG/M2,1 IN 14 D)
     Route: 042
     Dates: start: 20150916, end: 20160329
  7. ASPIRIN /00002701/ [Concomitant]
     Active Substance: ASPIRIN
     Indication: PROPHYLAXIS
     Dosage: 100 MG, 1 IN 1 D
     Route: 048
     Dates: start: 2001
  8. GLIPIZIDE. [Concomitant]
     Active Substance: GLIPIZIDE
     Indication: DIABETES MELLITUS
     Dosage: 15 MG (5 MG, 3 IN 1 D)
     Route: 048
     Dates: start: 201510
  9. ENDONE [Concomitant]
     Active Substance: OXYCODONE HYDROCHLORIDE
     Indication: ABDOMINAL PAIN UPPER
     Dosage: 5-10 MG (AS REQUIRED)
     Route: 048
     Dates: start: 20160426
  10. ABT-888 [Suspect]
     Active Substance: VELIPARIB
     Indication: COLORECTAL CANCER
     Dosage: DAYS -2 THROUGH 5 OF 14-DAY CYCLES (2 IN 1 D)
     Route: 048
     Dates: start: 20150914, end: 20160411
  11. GLIPIZIDE. [Concomitant]
     Active Substance: GLIPIZIDE
     Dosage: 6 MG (2 MG, 3 IN 1 D)
     Route: 048
     Dates: start: 2001, end: 201510
  12. ESOMEPRAZOLE /01479302/ [Concomitant]
     Active Substance: ESOMEPRAZOLE
     Indication: GASTROOESOPHAGEAL REFLUX DISEASE
     Dosage: 20 MG, 1 IN 1 D
     Route: 048
     Dates: start: 20160203
  13. FLUOROURACIL. [Suspect]
     Active Substance: FLUOROURACIL
     Indication: COLORECTAL CANCER
     Dosage: DAY 1 OF 14-DAY CYCLES, OVER 46 HOURS (2400 MG/M2,1 IN 14 D)
     Route: 042
     Dates: start: 20150916, end: 20151113
  14. IRINOTECAN HCL [Suspect]
     Active Substance: IRINOTECAN HYDROCHLORIDE
     Dosage: DAY 1 OF 14-DAY CYCL ES (150 MG/M2,1 IN 14 D)
     Route: 042
     Dates: start: 20151204, end: 20160329
  15. FLUOROURACIL. [Suspect]
     Active Substance: FLUOROURACIL
     Dosage: DAY 1 OF 14-DAY CYCLES (400 MG/M2, 1 IN 14 D)
     Route: 042
     Dates: start: 20150916, end: 20151111
  16. BEVACIZUMAB [Suspect]
     Active Substance: BEVACIZUMAB
     Indication: COLORECTAL CANCER
     Dosage: 5 MG/KG, IMMEDIATELY PRECEDING FOLFIRI
     Route: 042
     Dates: start: 20150930, end: 20160329

REACTIONS (2)
  - Pain [Fatal]
  - General physical health deterioration [Fatal]

NARRATIVE: CASE EVENT DATE: 20160702
